FAERS Safety Report 17727831 (Version 1)
Quarter: 2020Q2

REPORT INFORMATION
  Report Type: Spontaneous
  Country: US (occurrence: US)
  Receive Date: 20200429
  Receipt Date: 20200429
  Transmission Date: 20200714
  Serious: Yes (Hospitalization)
  Sender: FDA-Public Use
  Company Number: None

PATIENT
  Age: 80 Year
  Sex: Female

DRUGS (13)
  1. CEFUROXIME TAB 500 MG [Concomitant]
  2. PANTOPRAZOLE TAB 20 MG [Concomitant]
  3. FLUCONAZOLE TAB 100 MG [Concomitant]
  4. CICLOPIROX SOL 8% [Concomitant]
  5. DIPHEN/ATROP TAB 2.5 MG [Concomitant]
  6. MAG OXIDE TAB 400 MG [Concomitant]
  7. LEVOTHYROXINE TAB 100 MG [Concomitant]
  8. POT CHLORIDE CAP 10 MEQ [Concomitant]
  9. PROLIA [Suspect]
     Active Substance: DENOSUMAB
  10. FUROSEMIDE TAB 20 MG [Concomitant]
  11. MIDODRINE TAB 10 MG [Concomitant]
  12. PREDNISONE TAB 2.5 MG [Concomitant]
  13. AMIODARONE TAB 200 MG [Concomitant]

REACTIONS (4)
  - Pneumonia [None]
  - Aspiration [None]
  - Bronchiectasis [None]
  - Autoimmune disorder [None]
